FAERS Safety Report 15621125 (Version 1)
Quarter: 2018Q4

REPORT INFORMATION
  Report Type: Spontaneous
  Country: DE (occurrence: DE)
  Receive Date: 20181115
  Receipt Date: 20181115
  Transmission Date: 20190205
  Serious: Yes (Other)
  Sender: FDA-Public Use
  Company Number: DE-ALK-ABELLO A/S-2018AA002962

PATIENT

DRUGS (1)
  1. GRAZAX [Suspect]
     Active Substance: PHLEUM PRATENSE POLLEN
     Indication: PRODUCT USED FOR UNKNOWN INDICATION
     Dosage: 75000 SQ-T
     Dates: start: 201711

REACTIONS (4)
  - Gingival abscess [Not Recovered/Not Resolved]
  - Pruritus [Recovered/Resolved]
  - Noninfective gingivitis [Unknown]
  - Gingival swelling [Not Recovered/Not Resolved]

NARRATIVE: CASE EVENT DATE: 201711
